FAERS Safety Report 5945642-7 (Version None)
Quarter: 2008Q4

REPORT INFORMATION
  Report Type: 
  Country: None (occurrence: None)
  Receive Date: 20081107
  Receipt Date: 20081029
  Transmission Date: 20090506
  Serious: Yes (Other)
  Sender: FDA-Public Use
  Company Number: BR-PFIZER INC-2008092187

PATIENT
  Sex: Female
  Weight: 60 kg

DRUGS (4)
  1. LIPITOR [Suspect]
     Indication: DYSLIPIDAEMIA
     Route: 048
     Dates: start: 20080916, end: 20081001
  2. CALCIUM [Concomitant]
  3. OLCADIL [Concomitant]
  4. FLUOXETINE [Concomitant]

REACTIONS (1)
  - PAIN [None]
